FAERS Safety Report 24746433 (Version 2)
Quarter: 2024Q4

REPORT INFORMATION
  Report Type: Report from Study
  Country: GB (occurrence: GB)
  Receive Date: 20241218
  Receipt Date: 20241230
  Transmission Date: 20250114
  Serious: Yes (Other)
  Sender: SANDOZ
  Company Number: GB-SANDOZ-SDZ2024GB102824

PATIENT
  Sex: Male

DRUGS (1)
  1. HYRIMOZ [Suspect]
     Active Substance: ADALIMUMAB-ADAZ
     Indication: Crohn^s disease
     Dosage: 40 MG, Q2W
     Route: 058
     Dates: start: 20240325

REACTIONS (8)
  - Immunosuppression [Unknown]
  - Lower respiratory tract infection [Recovering/Resolving]
  - Diarrhoea [Recovering/Resolving]
  - Pain [Unknown]
  - Malaise [Not Recovered/Not Resolved]
  - Mobility decreased [Unknown]
  - Chest pain [Unknown]
  - Product dose omission issue [Unknown]
